FAERS Safety Report 4497661-8 (Version None)
Quarter: 2004Q4

REPORT INFORMATION
  Report Type: 
  Country: None (occurrence: None)
  Receive Date: 20041108
  Receipt Date: 20041025
  Transmission Date: 20050328
  Serious: Yes (Hospitalization)
  Sender: FDA-Public Use
  Company Number: US-JNJFOC-20040700460

PATIENT
  Sex: Female

DRUGS (17)
  1. DURAGESIC [Suspect]
     Route: 062
  2. DURAGESIC [Suspect]
     Indication: DRUG USE FOR UNKNOWN INDICATION
     Route: 062
  3. VIOXX [Concomitant]
  4. AMBIEN [Concomitant]
  5. BUSPIRONE HCL [Concomitant]
  6. DILAUDID [Concomitant]
     Route: 049
  7. LEXAPRO [Concomitant]
     Route: 049
  8. PROTONIX [Concomitant]
     Route: 049
  9. KLO-CORN [Concomitant]
     Route: 049
  10. SODIUM BICARBONATE [Concomitant]
     Route: 049
  11. PREDNISONE [Concomitant]
     Dosage: 5 MG ALTERNATING WITH 2.5 MG, EVERY 24 HOURS
     Route: 049
  12. CEROVITE [Concomitant]
     Route: 049
  13. CEROVITE [Concomitant]
     Route: 049
  14. CEROVITE [Concomitant]
     Route: 049
  15. CEROVITE [Concomitant]
     Route: 049
  16. CEROVITE [Concomitant]
     Route: 049
  17. ENBREL [Concomitant]
     Route: 058

REACTIONS (9)
  - ANXIETY [None]
  - APPLICATION SITE ERYTHEMA [None]
  - APPLICATION SITE PAPULES [None]
  - APPLICATION SITE PRURITUS [None]
  - DRUG EFFECT DECREASED [None]
  - INSOMNIA [None]
  - PSYCHOMOTOR HYPERACTIVITY [None]
  - THERAPEUTIC RESPONSE DECREASED [None]
  - ULCER [None]
